FAERS Safety Report 7573698-7 (Version None)
Quarter: 2011Q2

REPORT INFORMATION
  Report Type: 
  Country: None (occurrence: None)
  Receive Date: 20110627
  Receipt Date: 20110622
  Transmission Date: 20111010
  Serious: Yes (Other)
  Sender: FDA-Public Use
  Company Number: JP-GENZYME-THYM-1002522

PATIENT
  Age: 54 Year
  Sex: Female

DRUGS (10)
  1. FLUDARA [Suspect]
     Indication: BONE MARROW CONDITIONING REGIMEN
     Route: 065
  2. CYTARABINE [Concomitant]
     Indication: BONE MARROW CONDITIONING REGIMEN
  3. PREDNISOLONE [Concomitant]
     Dosage: 18 MG/DAY, UNK
  4. TACROLIMUS [Concomitant]
     Indication: PROPHYLAXIS AGAINST GRAFT VERSUS HOST DISEASE
     Route: 042
  5. METHYLPREDNISOLONE [Concomitant]
     Indication: PROPHYLAXIS AGAINST GRAFT VERSUS HOST DISEASE
     Dosage: 1 MG/KG, QD
  6. PREDNISOLONE [Concomitant]
     Dosage: 30 MG/DAY, UNK
  7. PREDNISOLONE [Concomitant]
     Indication: PRODUCT USED FOR UNKNOWN INDICATION
     Dosage: 35 MG/DAY, UNK
  8. PREDNISOLONE [Concomitant]
     Dosage: 3 MG/DAY, UNK
  9. BUSULFAN [Concomitant]
     Indication: BONE MARROW CONDITIONING REGIMEN
  10. ANTI-THYMOCYTE GLOBULIN NOS [Concomitant]
     Indication: BONE MARROW CONDITIONING REGIMEN

REACTIONS (4)
  - ESCHERICHIA INFECTION [None]
  - ANAEMIA HAEMOLYTIC AUTOIMMUNE [None]
  - ACUTE GRAFT VERSUS HOST DISEASE IN SKIN [None]
  - CYTOMEGALOVIRUS INFECTION [None]
